FAERS Safety Report 16229665 (Version 1)
Quarter: 2019Q2

REPORT INFORMATION
  Report Type: Spontaneous
  Country: ID (occurrence: ID)
  Receive Date: 20190423
  Receipt Date: 20190423
  Transmission Date: 20190711
  Serious: Yes (Death, Other)
  Sender: FDA-Public Use
  Company Number: ID-PFIZER INC-2019159385

PATIENT
  Age: 50 Year

DRUGS (1)
  1. ZYVOX [Suspect]
     Active Substance: LINEZOLID
     Dosage: UNK
     Route: 042

REACTIONS (2)
  - Sepsis [Fatal]
  - Thrombocytopenia [Unknown]
